FAERS Safety Report 21245996 (Version 1)
Quarter: 2022Q3

REPORT INFORMATION
  Report Type: Spontaneous
  Country: JP (occurrence: JP)
  Receive Date: 20220824
  Receipt Date: 20220824
  Transmission Date: 20221027
  Serious: Yes (Other)
  Sender: FDA-Public Use
  Company Number: JP-PFIZER INC-PV202200043964

PATIENT
  Sex: Female

DRUGS (2)
  1. ENBREL [Suspect]
     Active Substance: ETANERCEPT
     Indication: Product used for unknown indication
     Dosage: 25 MILLIGRAM
     Route: 058
  2. ENBREL [Suspect]
     Active Substance: ETANERCEPT
     Dosage: 25 MILLIGRAM
     Route: 042

REACTIONS (5)
  - Internal haemorrhage [Recovered/Resolved]
  - Haemorrhage [Recovered/Resolved]
  - Venous haemorrhage [Recovered/Resolved]
  - Wrong technique in product usage process [Unknown]
  - Product administered at inappropriate site [Unknown]
